FAERS Safety Report 15839842 (Version 1)
Quarter: 2019Q1

REPORT INFORMATION
  Report Type: Spontaneous
  Country: DE (occurrence: DE)
  Receive Date: 20190117
  Receipt Date: 20190117
  Transmission Date: 20190417
  Serious: Yes (Hospitalization)
  Sender: FDA-Public Use
  Company Number: PHHY2018DE174662

PATIENT
  Age: 55 Year
  Sex: Male
  Weight: 100 kg

DRUGS (1)
  1. ADALIMUMAB [Suspect]
     Active Substance: ADALIMUMAB
     Indication: PSORIASIS
     Dosage: UNK
     Route: 065
     Dates: start: 2009

REACTIONS (3)
  - Normochromic normocytic anaemia [Unknown]
  - IgA nephropathy [Recovering/Resolving]
  - Chronic kidney disease [Recovering/Resolving]
